FAERS Safety Report 7964734-4 (Version None)
Quarter: 2011Q4

REPORT INFORMATION
  Report Type: 
  Country: None (occurrence: None)
  Receive Date: 20111208
  Receipt Date: 20111128
  Transmission Date: 20120403
  Serious: Yes (Life-Threatening, Hospitalization, Other)
  Sender: FDA-Public Use
  Company Number: CA-ELI_LILLY_AND_COMPANY-CA201111008122

PATIENT
  Sex: Male

DRUGS (6)
  1. ZYPREXA [Suspect]
     Indication: SCHIZOPHRENIA
     Dosage: 5 MG, EACH EVENING
     Dates: start: 20010912, end: 20020109
  2. ZYPREXA [Suspect]
     Dosage: 20 MG, EACH EVENING
     Dates: end: 20020109
  3. PROCYCLIDINE HYDROCHLORIDE 2MG TAB [Concomitant]
  4. LEVOTHYROXINE SODIUM [Concomitant]
  5. ZYPREXA [Suspect]
     Dosage: 10 MG, EACH EVENING
  6. ZYPREXA [Suspect]
     Dosage: 15 MG, EACH EVENING

REACTIONS (9)
  - MYOCARDIAL INFARCTION [None]
  - DIABETES MELLITUS [None]
  - ANAEMIA [None]
  - PNEUMONIA [None]
  - HYPERLIPIDAEMIA [None]
  - HYPERTENSION [None]
  - RESPIRATORY FAILURE [None]
  - NEUTROPENIA [None]
  - BLOOD CREATININE INCREASED [None]
